FAERS Safety Report 9779617 (Version 1)
Quarter: 2013Q4

REPORT INFORMATION
  Report Type: Report from Study
  Country: CO (occurrence: CO)
  Receive Date: 20131223
  Receipt Date: 20131223
  Transmission Date: 20140711
  Serious: Yes (Other)
  Sender: FDA-Public Use
  Company Number: CO-US-EMD SERONO, INC.-7258555

PATIENT
  Sex: Male
  Weight: 39 kg

DRUGS (1)
  1. SAIZEN [Suspect]
     Indication: BODY HEIGHT BELOW NORMAL
     Route: 058
     Dates: start: 20120228

REACTIONS (3)
  - Osteochondrosis [Unknown]
  - Joint injury [Unknown]
  - Arthralgia [Unknown]
